FAERS Safety Report 25941821 (Version 3)
Quarter: 2025Q4

REPORT INFORMATION
  Report Type: Spontaneous
  Country: JP (occurrence: JP)
  Receive Date: 20251020
  Receipt Date: 20251204
  Transmission Date: 20260117
  Serious: Yes (Hospitalization, Other)
  Sender: PFIZER
  Company Number: JP-PFIZER INC-PV202500123963

PATIENT
  Sex: Male

DRUGS (1)
  1. SIROLIMUS [Suspect]
     Active Substance: SIROLIMUS
     Dosage: UNK
     Route: 048
     Dates: start: 202508

REACTIONS (7)
  - Infection [Unknown]
  - Thrombotic microangiopathy [Unknown]
  - Ascites [Recovering/Resolving]
  - Dyspnoea [Recovering/Resolving]
  - Altered state of consciousness [Recovering/Resolving]
  - Pneumocystis jirovecii pneumonia [Unknown]
  - Visual impairment [Unknown]
